FAERS Safety Report 14136539 (Version 2)
Quarter: 2017Q4

REPORT INFORMATION
  Report Type: Spontaneous
  Country: HK (occurrence: HK)
  Receive Date: 20171027
  Receipt Date: 20171030
  Transmission Date: 20180321
  Serious: Yes (Hospitalization, Other)
  Sender: FDA-Public Use
  Company Number: HK-PFIZER INC-HQWYE355908JUN04

PATIENT
  Age: 47 Year
  Sex: Male

DRUGS (1)
  1. TAZOCIN [Suspect]
     Active Substance: PIPERACILLIN SODIUM\TAZOBACTAM SODIUM
     Indication: PNEUMONIA
     Dosage: 4.5 G, 2X/DAY (4 G/500 MG EVERY 12 H)
     Route: 042

REACTIONS (2)
  - Delirium [Recovered/Resolved]
  - Toxic encephalopathy [Recovered/Resolved]
